FAERS Safety Report 7934537-5 (Version None)
Quarter: 2011Q4

REPORT INFORMATION
  Report Type: 
  Country: None (occurrence: None)
  Receive Date: 20111116
  Receipt Date: 20111109
  Transmission Date: 20120403
  Serious: Yes (Hospitalization)
  Sender: FDA-Public Use
  Company Number: 2011SP052929

PATIENT
  Age: 76 Year
  Sex: Female

DRUGS (12)
  1. SENNOSIDE [Concomitant]
  2. ZOLPIDEM [Concomitant]
  3. CLONAZEPAM [Concomitant]
  4. PAROXETINE HCL [Concomitant]
  5. RILMAZAFONE HYDROCHLORIDE [Concomitant]
  6. LEVOTHYROXINE SODIUM [Concomitant]
  7. CEFDITOREN PIVOXIL [Concomitant]
  8. VALSARTAN [Concomitant]
  9. LOXOPROFEN SODIUM [Concomitant]
  10. ETIZOLAM [Concomitant]
  11. MIRTAZAPINE [Suspect]
     Indication: DEPRESSION
     Dosage: 15 MG;QD;PO 7.5 MG;QD;PO
     Route: 048
     Dates: start: 20110722, end: 20110930
  12. MIRTAZAPINE [Suspect]
     Indication: DEPRESSION
     Dosage: 15 MG;QD;PO 7.5 MG;QD;PO
     Route: 048
     Dates: start: 20110708, end: 20110721

REACTIONS (1)
  - HEPATITIS [None]
